FAERS Safety Report 19803485 (Version 4)
Quarter: 2024Q1

REPORT INFORMATION
  Report Type: Report from Study
  Country: NL (occurrence: NL)
  Receive Date: 20210908
  Receipt Date: 20240216
  Transmission Date: 20240410
  Serious: Yes (Hospitalization)
  Sender: FDA-Public Use
  Company Number: NL-SA-2020SA245775

PATIENT
  Age: 42 Year
  Sex: Male
  Weight: 67 kg

DRUGS (7)
  1. DUPILUMAB [Suspect]
     Active Substance: DUPILUMAB
     Indication: Dermatitis atopic
     Dosage: 300 MG, QOW
     Route: 065
     Dates: start: 20200225, end: 20200908
  2. HYALURON [HYALURONATE SODIUM] [Concomitant]
     Dosage: EYE DROPS, 0.15 / 0.15 MG / ML
  3. BETAMETHASONE [Concomitant]
     Active Substance: BETAMETHASONE\BETAMETHASONE DIPROPIONATE
     Dosage: 0.5 MG/G
  4. TACROLIMUS [Concomitant]
     Active Substance: TACROLIMUS
     Dosage: 1 MG/G
  5. MOMETASONE FUROATE [Concomitant]
     Active Substance: MOMETASONE FUROATE
     Dosage: 1 MG/G
  6. ZADITEN [Concomitant]
     Active Substance: KETOTIFEN FUMARATE
     Dosage: EYE DROPS, 0.25 MG / ML
  7. TROPICAMIDE [Concomitant]
     Active Substance: TROPICAMIDE
     Dosage: UNK

REACTIONS (6)
  - Uveitis [Unknown]
  - Cytomegalovirus infection [Unknown]
  - Uveitis [Recovered/Resolved]
  - Myalgia [Not Recovered/Not Resolved]
  - Arthralgia [Not Recovered/Not Resolved]
  - Conjunctivitis [Unknown]

NARRATIVE: CASE EVENT DATE: 20200324
